FAERS Safety Report 8169828-9 (Version None)
Quarter: 2012Q1

REPORT INFORMATION
  Report Type: 
  Country: None (occurrence: None)
  Receive Date: 20120228
  Receipt Date: 20120223
  Transmission Date: 20120608
  Serious: No
  Sender: FDA-Public Use
  Company Number: US-BAYER-2012-018975

PATIENT

DRUGS (1)
  1. MAGNEVIST [Suspect]

REACTIONS (3)
  - NASAL CONGESTION [None]
  - SNEEZING [None]
  - COUGH [None]
